FAERS Safety Report 6822651-7 (Version None)
Quarter: 2010Q3

REPORT INFORMATION
  Report Type: 
  Country: None (occurrence: None)
  Receive Date: 20100706
  Receipt Date: 20100706
  Transmission Date: 20110219
  Serious: Yes (Other)
  Sender: FDA-Public Use
  Company Number: None

PATIENT
  Age: 58 Year
  Sex: Female
  Weight: 68.0396 kg

DRUGS (2)
  1. ESTROGENIC SUBSTANCE [Suspect]
     Indication: MENOPAUSE
     Dosage: 1/2 ML ONCE A DAY TOP
     Route: 061
     Dates: start: 20090701, end: 20100630
  2. PROGESTERONE [Suspect]
     Indication: MENOPAUSE
     Dosage: 1/2 ML TWICE A DAY TOP
     Route: 061
     Dates: start: 20090701, end: 20100630

REACTIONS (5)
  - DEPRESSION [None]
  - FATIGUE [None]
  - HOT FLUSH [None]
  - INITIAL INSOMNIA [None]
  - PRODUCT QUALITY ISSUE [None]
